FAERS Safety Report 16255279 (Version 1)
Quarter: 2019Q2

REPORT INFORMATION
  Report Type: Spontaneous
  Country: US (occurrence: US)
  Receive Date: 20190430
  Receipt Date: 20190430
  Transmission Date: 20190711
  Serious: No
  Sender: FDA-Public Use
  Company Number: US-BAUSCH-BL-2018-017521

PATIENT
  Age: 48 Year
  Sex: Female

DRUGS (2)
  1. ALDARA [Suspect]
     Active Substance: IMIQUIMOD
     Indication: ANOGENITAL WARTS
     Dosage: 3 CONSECUTIVE DAYS
     Route: 061
     Dates: start: 20180612, end: 20180615
  2. ALDARA [Suspect]
     Active Substance: IMIQUIMOD
     Dosage: ONCE DAILY FOR 3 CONSECUTIVE DAYS
     Route: 061
     Dates: start: 201806, end: 201806

REACTIONS (2)
  - Thermal burn [Not Recovered/Not Resolved]
  - Medication error [Recovered/Resolved]

NARRATIVE: CASE EVENT DATE: 201806
